FAERS Safety Report 25897487 (Version 1)
Quarter: 2025Q4

REPORT INFORMATION
  Report Type: Spontaneous
  Country: JP (occurrence: JP)
  Receive Date: 20251008
  Receipt Date: 20251008
  Transmission Date: 20260118
  Serious: Yes (Hospitalization)
  Sender: EISAI
  Company Number: JP-Eisai-202508308_LEN_P_1

PATIENT
  Sex: Male

DRUGS (4)
  1. LENVATINIB [Suspect]
     Active Substance: LENVATINIB
     Indication: Anaplastic thyroid cancer
     Dosage: ADMINISTRATION OF 2-DOSE AND 1-INTERRUPTION
     Route: 048
  2. LENVATINIB [Suspect]
     Active Substance: LENVATINIB
     Dosage: FREQUENCY UNKNOWN
     Route: 048
  3. LENVATINIB [Suspect]
     Active Substance: LENVATINIB
     Dosage: ADMINISTRATION OF 2-DOSE AND 1-INTERRUPTION
     Route: 048
  4. LENVATINIB [Suspect]
     Active Substance: LENVATINIB
     Dosage: WEEKEND OFF METHOD
     Route: 048

REACTIONS (4)
  - Pneumothorax [Unknown]
  - Malaise [Unknown]
  - Hypertension [Unknown]
  - Proteinuria [Unknown]
